FAERS Safety Report 15634621 (Version 1)
Quarter: 2018Q4

REPORT INFORMATION
  Report Type: Spontaneous
  Country: DK (occurrence: DK)
  Receive Date: 20181119
  Receipt Date: 20181119
  Transmission Date: 20190205
  Serious: Yes (Other)
  Sender: FDA-Public Use
  Company Number: DK-ROCHE-2216015

PATIENT
  Age: 46 Year
  Sex: Female

DRUGS (3)
  1. LAMOTRIGIN [Suspect]
     Active Substance: LAMOTRIGINE
     Indication: PRODUCT USED FOR UNKNOWN INDICATION
     Dosage: STYRKE: 100 MG.
     Route: 048
     Dates: start: 20160101
  2. OXAPAX [Suspect]
     Active Substance: OXAZEPAM
     Indication: RESTLESSNESS
     Dosage: STYRKE: 15 MG.
     Route: 048
     Dates: start: 20180116, end: 20180307
  3. RIVOTRIL [Suspect]
     Active Substance: CLONAZEPAM
     Indication: PRODUCT USED FOR UNKNOWN INDICATION
     Dosage: STYRKE: 2 MG.
     Route: 048
     Dates: start: 20171226

REACTIONS (4)
  - Headache [Not Recovered/Not Resolved]
  - Drug-induced liver injury [Not Recovered/Not Resolved]
  - Blood urine present [Not Recovered/Not Resolved]
  - Suicide attempt [Unknown]
